FAERS Safety Report 15234914 (Version 2)
Quarter: 2019Q3

REPORT INFORMATION
  Report Type: Spontaneous
  Country: US (occurrence: US)
  Receive Date: 20180803
  Receipt Date: 20190805
  Transmission Date: 20191004
  Serious: Yes (Other)
  Sender: FDA-Public Use
  Company Number: US-ACCORD-065243

PATIENT
  Age: 66 Year
  Sex: Female
  Weight: 54.43 kg

DRUGS (9)
  1. DOCETAXEL ACCORD [Suspect]
     Active Substance: DOCETAXEL
     Indication: INVASIVE DUCTAL BREAST CARCINOMA
     Dosage: NUMBER OF CYCLES: 06
     Dates: start: 20160627, end: 201611
  2. ANASTROZOLE. [Concomitant]
     Active Substance: ANASTROZOLE
  3. IBUPROFEN. [Concomitant]
     Active Substance: IBUPROFEN
  4. TRASTUZUMAB. [Suspect]
     Active Substance: TRASTUZUMAB
     Indication: INVASIVE DUCTAL BREAST CARCINOMA
     Dosage: NUMBER OF CYCLES: 06
     Dates: start: 20160627, end: 201611
  5. LORAZEPAM. [Concomitant]
     Active Substance: LORAZEPAM
  6. PARAPLATIN [Suspect]
     Active Substance: CARBOPLATIN
     Indication: INVASIVE DUCTAL BREAST CARCINOMA
     Dosage: NUMBER OF CYCLES: 06
     Dates: start: 20160627, end: 201611
  7. DIPHENHYDRAMINE. [Concomitant]
     Active Substance: DIPHENHYDRAMINE
  8. ALEVE [Concomitant]
     Active Substance: NAPROXEN SODIUM
  9. LORAZEPAM. [Concomitant]
     Active Substance: LORAZEPAM

REACTIONS (1)
  - Alopecia [Not Recovered/Not Resolved]

NARRATIVE: CASE EVENT DATE: 201607
